FAERS Safety Report 9918689 (Version 3)
Quarter: 2014Q2

REPORT INFORMATION
  Report Type: Spontaneous
  Country: IT (occurrence: IT)
  Receive Date: 20140224
  Receipt Date: 20140627
  Transmission Date: 20141212
  Serious: Yes (Hospitalization)
  Sender: FDA-Public Use
  Company Number: IT-ROCHE-1352045

PATIENT
  Age: 72 Year
  Sex: Female

DRUGS (17)
  1. RIVOTRIL [Suspect]
     Indication: PAIN
     Route: 048
     Dates: start: 20140203, end: 20140203
  2. CONTRAMAL [Suspect]
     Indication: PAIN
     Route: 048
     Dates: start: 20140203, end: 20140203
  3. BISOPROLOL FUMARAT [Concomitant]
     Indication: HYPERTENSIVE CARDIOMYOPATHY
     Route: 048
     Dates: start: 20131115, end: 20140203
  4. RAMIPRIL [Concomitant]
     Indication: HYPERTENSIVE CARDIOMYOPATHY
     Route: 048
     Dates: start: 20110902, end: 20140203
  5. DOXAZOSIN MESILATE [Concomitant]
     Route: 048
     Dates: start: 20110902, end: 20140203
  6. AMLODIPINE BESILATE [Concomitant]
     Route: 048
     Dates: start: 20131115, end: 20140203
  7. TACHIPIRINA [Concomitant]
     Indication: ARTHRALGIA
     Route: 048
     Dates: start: 20131115, end: 20140203
  8. MINIAS [Concomitant]
     Route: 048
     Dates: start: 20131115, end: 20140203
  9. NOVORAPID [Concomitant]
     Indication: TYPE 2 DIABETES MELLITUS
     Route: 058
     Dates: start: 20131115, end: 20140203
  10. MEPRAL [Concomitant]
     Route: 048
     Dates: start: 20131115, end: 20140203
  11. TRINIPLAS [Concomitant]
     Route: 062
     Dates: start: 20131115, end: 20140203
  12. DUOPLAVIN [Concomitant]
     Indication: PROPHYLAXIS
     Route: 048
     Dates: start: 20110902, end: 20140203
  13. TORVAST [Concomitant]
     Route: 048
     Dates: start: 20110902, end: 20140203
  14. LANTUS [Concomitant]
     Indication: TYPE 2 DIABETES MELLITUS
     Route: 058
     Dates: start: 20131115, end: 20140203
  15. DUROGESIC [Concomitant]
     Indication: PAIN
     Route: 062
     Dates: start: 20131115, end: 20140203
  16. LASIX [Concomitant]
     Route: 048
     Dates: start: 20131115, end: 20140203
  17. OXYGEN [Concomitant]

REACTIONS (6)
  - Accidental overdose [Unknown]
  - Sedation [Recovered/Resolved with Sequelae]
  - Joint injury [Recovered/Resolved with Sequelae]
  - Drug prescribing error [Unknown]
  - Dysstasia [Recovered/Resolved with Sequelae]
  - Off label use [Unknown]
